FAERS Safety Report 12984360 (Version 1)
Quarter: 2016Q4

REPORT INFORMATION
  Report Type: Spontaneous
  Country: US (occurrence: US)
  Receive Date: 20161129
  Receipt Date: 20161129
  Transmission Date: 20170207
  Serious: Yes (Hospitalization)
  Sender: FDA-Public Use
  Company Number: US-HERITAGE PHARMACEUTICALS-2016HTG00279

PATIENT
  Sex: Female

DRUGS (3)
  1. CALCIUM ACETATE. [Suspect]
     Active Substance: CALCIUM ACETATE
  2. CALCITRIOL. [Suspect]
     Active Substance: CALCITRIOL
  3. OTHER CALCIUM PRODUCTS [Concomitant]

REACTIONS (3)
  - Hypocalcaemia [Unknown]
  - Abdominal pain upper [Unknown]
  - Diarrhoea [Unknown]
